FAERS Safety Report 8146659-7 (Version None)
Quarter: 2012Q1

REPORT INFORMATION
  Report Type: 
  Country: None (occurrence: None)
  Receive Date: 20120217
  Receipt Date: 20110922
  Transmission Date: 20120608
  Serious: No
  Sender: FDA-Public Use
  Company Number: US-ABBOTT-11P-163-0856854-00

PATIENT
  Sex: Female

DRUGS (3)
  1. SIMCOR [Suspect]
     Indication: BLOOD CHOLESTEROL INCREASED
     Dosage: 500MG/40MG DOSE AT BEDTIME
     Dates: start: 20110807, end: 20110919
  2. MEDICATION FOR SHINGLES [Concomitant]
     Indication: HERPES ZOSTER
  3. AMITRIPTYLENE [Concomitant]
     Indication: PRODUCT USED FOR UNKNOWN INDICATION

REACTIONS (3)
  - SKIN BURNING SENSATION [None]
  - PRURITUS [None]
  - PALPITATIONS [None]
